FAERS Safety Report 23441744 (Version 2)
Quarter: 2024Q2

REPORT INFORMATION
  Report Type: Report from Study
  Country: EG (occurrence: None)
  Receive Date: 20240125
  Receipt Date: 20240401
  Transmission Date: 20240716
  Serious: Yes (Other)
  Sender: FDA-Public Use
  Company Number: 2024A016514

PATIENT
  Age: 59 Year
  Sex: Male

DRUGS (3)
  1. IMFINZI [Suspect]
     Active Substance: DURVALUMAB
     Indication: Cholangiocarcinoma
     Route: 041
     Dates: start: 20230826
  2. CARBOPLATIN [Concomitant]
     Active Substance: CARBOPLATIN
  3. GEMZAR [Concomitant]
     Active Substance: GEMCITABINE HYDROCHLORIDE

REACTIONS (4)
  - Hypoacusis [Unknown]
  - Dyspnoea [Unknown]
  - Nasopharyngitis [Unknown]
  - Product use issue [Unknown]
